FAERS Safety Report 13197801 (Version 22)
Quarter: 2019Q3

REPORT INFORMATION
  Report Type: Spontaneous
  Country: US (occurrence: US)
  Receive Date: 20170208
  Receipt Date: 20190919
  Transmission Date: 20191004
  Serious: Yes (Hospitalization, Disabling, Other)
  Sender: FDA-Public Use
  Company Number: US-PFIZER INC-2017056065

PATIENT
  Age: 57 Year
  Sex: Male

DRUGS (103)
  1. DILANTIN [Suspect]
     Active Substance: PHENYTOIN
     Indication: GENERALISED TONIC-CLONIC SEIZURE
     Dosage: 100 MG, 3X/DAY
     Route: 048
     Dates: start: 20060621
  2. DILANTIN [Suspect]
     Active Substance: PHENYTOIN
     Dosage: 300 MG, DAILY (100 MG IN THE MORNING (Q AM) AND 200 MG IN THE EVENING (Q PM) ON ODD DAYS)
     Route: 048
     Dates: start: 20170827, end: 20180215
  3. DILANTIN [Suspect]
     Active Substance: PHENYTOIN
     Dosage: 150 MG, 1X/DAY (50 MG, 3 TABLETS, AT BED TIME)
     Route: 048
     Dates: start: 20180823, end: 20181002
  4. DILANTIN [Suspect]
     Active Substance: PHENYTOIN
     Dosage: 150 MG, 1X/DAY (50 MG, 3 TABLETS, IN THE MORNING)
     Route: 048
     Dates: start: 20190110, end: 20190322
  5. DILANTIN [Suspect]
     Active Substance: PHENYTOIN
     Indication: EPILEPSY
     Dosage: UNK
     Dates: start: 1966
  6. PHENOBARBITAL. [Concomitant]
     Active Substance: PHENOBARBITAL
     Dosage: UNK
     Dates: start: 2011
  7. KEPPRA [Concomitant]
     Active Substance: LEVETIRACETAM
     Dosage: UNK
     Dates: start: 2009
  8. LAMOTRIGINE. [Concomitant]
     Active Substance: LAMOTRIGINE
     Dosage: 200 MG, 2X/DAY
     Route: 048
  9. LORAZEPAM. [Concomitant]
     Active Substance: LORAZEPAM
     Dosage: UNK
     Dates: start: 2010
  10. BUSPIRONE [Concomitant]
     Active Substance: BUSPIRONE HYDROCHLORIDE
     Indication: GENERALISED ANXIETY DISORDER
     Dosage: 10 MG, TUBE BID
  11. ASPIRIN EC [Concomitant]
     Active Substance: ASPIRIN
     Dosage: 81 MG, DAILY (1 PILL)
     Route: 048
  12. POLYETHYLENE GLYCOL [Concomitant]
     Active Substance: POLYETHYLENE GLYCOLS
     Indication: CONSTIPATION
     Dosage: UNK
     Dates: start: 2017
  13. ERGOCALCIFEROL. [Concomitant]
     Active Substance: ERGOCALCIFEROL
     Indication: VITAMIN D DEFICIENCY
     Dosage: 8000 IU, 2X/WEEK
  14. IRON [Concomitant]
     Active Substance: IRON
     Indication: IRON DEFICIENCY ANAEMIA
     Dosage: 300 MG, BID
     Route: 048
  15. OMEPRAZOLE. [Concomitant]
     Active Substance: OMEPRAZOLE
     Indication: INSOMNIA
     Dosage: 20 MG, QD TUBE
  16. BUSPAR [Concomitant]
     Active Substance: BUSPIRONE HYDROCHLORIDE
     Dosage: 10 MG, 1 TABLET VIA G-TUBE 2 TIMES DAILY
     Dates: start: 20150917
  17. DILANTIN [Suspect]
     Active Substance: PHENYTOIN
     Dosage: UNK
     Dates: start: 201201
  18. DILANTIN [Suspect]
     Active Substance: PHENYTOIN
     Dosage: 200 MG, 2X/DAY (ON EVEN DAYS)
     Route: 048
     Dates: start: 20170826, end: 20180215
  19. DILANTIN [Suspect]
     Active Substance: PHENYTOIN
     Dosage: 150 MG, 1X/DAY (50 MG, 3 TABLETS, IN THE EVENING)
     Route: 048
     Dates: start: 20181228, end: 20190218
  20. KEPPRA [Concomitant]
     Active Substance: LEVETIRACETAM
     Indication: SEIZURE
     Dosage: 500 MG, 2X/DAY (4 PILLS)
  21. LORATADINE. [Concomitant]
     Active Substance: LORATADINE
     Indication: NASOPHARYNGITIS
     Dosage: UNK
     Dates: start: 2009
  22. SENNA S [Concomitant]
     Active Substance: DOCUSATE SODIUM\SENNA LEAF
     Indication: CONSTIPATION
     Dosage: UNK
     Dates: start: 2017
  23. ERGOCALCIFEROL. [Concomitant]
     Active Substance: ERGOCALCIFEROL
     Indication: SUPPLEMENTATION THERAPY
     Dosage: UNK
     Dates: start: 2014
  24. PROTONIX [Concomitant]
     Active Substance: PANTOPRAZOLE SODIUM
     Dosage: 1 DF, DAILY
     Route: 048
     Dates: start: 20121210
  25. DILANTIN [Suspect]
     Active Substance: PHENYTOIN
     Dosage: 400 MG, DAILY (100 MG CAPSULE ONE IN AM, ONE CAPSULE AT NOON, 2 CAPSULES PM)
     Route: 048
     Dates: start: 20070924
  26. DILANTIN [Suspect]
     Active Substance: PHENYTOIN
     Dosage: 300 MG (100 MG ONE CAPSULE AM AND TWO CAPSULES PM)
     Route: 048
     Dates: start: 20081203, end: 20090827
  27. DILANTIN [Suspect]
     Active Substance: PHENYTOIN
     Dosage: 200 MG, 2X/DAY
     Route: 048
     Dates: start: 20180215, end: 20180508
  28. DILANTIN [Suspect]
     Active Substance: PHENYTOIN
     Dosage: 200 MG, 2X/DAY
     Route: 048
     Dates: start: 20180510, end: 20180621
  29. DILANTIN [Suspect]
     Active Substance: PHENYTOIN
     Dosage: 200 MG, 1X/DAY (50 MG, 4 TABLETS)
     Route: 048
     Dates: start: 20180824, end: 20181204
  30. DILANTIN [Suspect]
     Active Substance: PHENYTOIN
     Dosage: 150 MG, 2X/DAY (50 MG, 3 TABLETS)
     Route: 048
     Dates: start: 20181204, end: 20181228
  31. DILANTIN [Suspect]
     Active Substance: PHENYTOIN
     Dosage: UNK (TAKES TWO TABS IN THE MORNING, TWO TABS IN THE EVENING, AND 2.5 TABS AT BEDTIME)
     Route: 048
     Dates: start: 20120424, end: 20120503
  32. DILANTIN-125 [Suspect]
     Active Substance: PHENYTOIN
     Indication: SEIZURE
     Dosage: 4 ML, 1X/DAY (125 MG/5ML), 4 ML (100 MG) VIA G-TUBE)
     Route: 048
     Dates: start: 20161008, end: 20170822
  33. LAMICTAL [Concomitant]
     Active Substance: LAMOTRIGINE
     Dosage: 200 MG, 2X/DAY (1 PILL)
  34. PHENOBARBITAL. [Concomitant]
     Active Substance: PHENOBARBITAL
     Indication: SEIZURE
     Dosage: UNK
     Dates: start: 1957, end: 1966
  35. PHENOBARBITAL. [Concomitant]
     Active Substance: PHENOBARBITAL
     Indication: EPILEPSY
     Dosage: UNK
     Dates: start: 2009
  36. LAMOTRIGINE. [Concomitant]
     Active Substance: LAMOTRIGINE
     Indication: SEIZURE
     Dosage: 5 DF, 3X/DAY
  37. LEVETIRACETAM. [Concomitant]
     Active Substance: LEVETIRACETAM
     Indication: SEIZURE
     Dosage: 3 DF, 2X/DAY
  38. LEVETIRACETAM. [Concomitant]
     Active Substance: LEVETIRACETAM
     Indication: EPILEPSY
     Dosage: 4 DF, 2X/DAY
     Route: 048
  39. LEVETIRACETAM. [Concomitant]
     Active Substance: LEVETIRACETAM
     Dosage: 5 DF, 3X/DAY
     Dates: start: 20150906
  40. LORAZEPAM. [Concomitant]
     Active Substance: LORAZEPAM
     Dosage: 1 DF, DAILY
     Route: 048
     Dates: start: 20150906
  41. FOSAMAX [Concomitant]
     Active Substance: ALENDRONATE SODIUM
     Dosage: 70MG/75ML, ADMINISTER 75 ML VIA G -TUBE EVERY FRIDAY
     Dates: start: 20160129
  42. ALBUTEROL. [Concomitant]
     Active Substance: ALBUTEROL
     Indication: DYSPNOEA
     Dosage: UNK
     Dates: start: 2012
  43. DIAZEPAM. [Concomitant]
     Active Substance: DIAZEPAM
     Indication: EPILEPSY
     Dosage: UNK
     Route: 054
     Dates: start: 2013
  44. ASPIR 81 [Concomitant]
     Active Substance: ASPIRIN
     Dosage: 1 DF, DAILY
     Route: 048
     Dates: start: 20150906
  45. BUSPIRONE HCL [Concomitant]
     Active Substance: BUSPIRONE HYDROCHLORIDE
     Dosage: 2 DF, DAILY
     Dates: start: 20150906
  46. DILANTIN [Suspect]
     Active Substance: PHENYTOIN
     Dosage: 1.5 DF, DAILY (75 MG AT 5 PM EVERY DAY)
     Route: 048
     Dates: start: 20150906
  47. DILANTIN [Suspect]
     Active Substance: PHENYTOIN
     Indication: SEIZURE
     Dosage: 500 MG, 3X/DAY (IVPB)
     Route: 042
     Dates: start: 20001122
  48. ATIVAN [Concomitant]
     Active Substance: LORAZEPAM
     Dosage: UNK
     Dates: start: 2009
  49. LEVETIRACETAM. [Concomitant]
     Active Substance: LEVETIRACETAM
     Dosage: 5 DF (EVERY 12 HRS)
     Route: 048
     Dates: start: 20121210
  50. CALCIUM CARBONATE. [Concomitant]
     Active Substance: CALCIUM CARBONATE
     Dosage: 600 MG, DAILY (1 PILL)
     Route: 048
  51. FISH OIL [Concomitant]
     Active Substance: FISH OIL
     Dosage: 1000 MG, 1X/DAY (1 PILL)
     Route: 048
  52. MELATONIN [Concomitant]
     Active Substance: MELATONIN
     Dosage: 3 MG, QD TUBE
  53. FLORASTOR [Concomitant]
     Active Substance: SACCHAROMYCES CEREVISIAE
     Indication: PROBIOTIC THERAPY
     Dosage: UNK
     Dates: start: 2016
  54. AVELOX [Concomitant]
     Active Substance: MOXIFLOXACIN HYDROCHLORIDE
     Dosage: 1 DF, DAILY
     Route: 048
     Dates: start: 20130102, end: 20130112
  55. DILANTIN [Suspect]
     Active Substance: PHENYTOIN
     Dosage: 200 MG, SINGLE (50 MG, 4 TABLETS, ONE TIME ONLY)
     Route: 048
     Dates: start: 20180509, end: 20180509
  56. DILANTIN [Suspect]
     Active Substance: PHENYTOIN
     Dosage: 150 MG, 1X/DAY (50 MG, 3 TABLETS, IN THE EVENING)
     Route: 048
     Dates: start: 20181002, end: 20181203
  57. DILANTIN [Suspect]
     Active Substance: PHENYTOIN
     Dosage: 150 MG, 2X/DAY (50 MG, 3 TABLETS)
     Route: 048
     Dates: start: 20190323, end: 20190327
  58. DILANTIN [Suspect]
     Active Substance: PHENYTOIN
     Dosage: 300 MG TOTAL ON ODD DAYS (2 DF, 3 TIMES DAILY); 325 MG ON EVEN DAYS (2 MORNING, 2 AFTERNOON, 2.5 PM
     Route: 048
     Dates: start: 20120503, end: 20120516
  59. ATIVAN [Concomitant]
     Active Substance: LORAZEPAM
     Indication: SEIZURE
     Dosage: 0.5 MG, 2X/DAY (1 PILL)
  60. ONFI [Concomitant]
     Active Substance: CLOBAZAM
     Dosage: 20 MG, BID
  61. LEVETIRACETAM. [Concomitant]
     Active Substance: LEVETIRACETAM
     Dosage: UNK
     Dates: start: 2009
  62. LORAZEPAM. [Concomitant]
     Active Substance: LORAZEPAM
     Indication: ANXIETY
     Dosage: 1 DF, UNK
  63. BUSPIRONE [Concomitant]
     Active Substance: BUSPIRONE HYDROCHLORIDE
     Indication: MOOD SWINGS
     Dosage: UNK
     Dates: start: 2013
  64. MELATONIN [Concomitant]
     Active Substance: MELATONIN
     Indication: INSOMNIA
     Dosage: 6 MG, 1X/DAY (2 PILLS)
     Route: 048
  65. ENOXAPARIN SODIUM. [Concomitant]
     Active Substance: ENOXAPARIN SODIUM
     Dosage: (80 MG/0.8 ML SUBCUTANEOUS SYRINGE)12 TIMES PER DAY
     Route: 058
     Dates: start: 20121210, end: 20121213
  66. DILANTIN [Suspect]
     Active Substance: PHENYTOIN
     Dosage: 500 MG, DAILY (100 MG TWO CAPSULES AM, ONE CAPSULE AT NOON AND TWO CAPSULES PM
     Route: 048
     Dates: start: 20061030
  67. DILANTIN [Suspect]
     Active Substance: PHENYTOIN
     Dosage: 350 MG, DAILY (50 MG, 3 TABS IN THE MORNING AND 4 TABS AT NIGHT)
     Route: 048
     Dates: start: 20190218
  68. DILANTIN [Suspect]
     Active Substance: PHENYTOIN
     Dosage: 2 DF, 4X/DAY
     Route: 048
     Dates: start: 20121210
  69. DILANTIN [Suspect]
     Active Substance: PHENYTOIN
     Dosage: TAKE 2 TABLETS(100 MG) TWO TIMES DAILY + 3 TABS (150MG) AT NIGHT VIA G-TUBE
     Route: 048
     Dates: start: 20160502
  70. PHENOBARBITAL. [Concomitant]
     Active Substance: PHENOBARBITAL
     Dosage: UNK
  71. ONFI [Concomitant]
     Active Substance: CLOBAZAM
     Indication: EPILEPSY
     Dosage: UNK (12 TIMES PER DAY)
     Dates: start: 20150906
  72. LAMOTRIGINE. [Concomitant]
     Active Substance: LAMOTRIGINE
     Indication: EPILEPSY
     Dosage: UNK
  73. LAMOTRIGINE. [Concomitant]
     Active Substance: LAMOTRIGINE
     Dosage: 250 MG, 2X/DAY (2.5 TABLET)
     Route: 048
  74. LAMOTRIGINE. [Concomitant]
     Active Substance: LAMOTRIGINE
     Dosage: UNK
     Dates: start: 2009
  75. LORAZEPAM. [Concomitant]
     Active Substance: LORAZEPAM
     Indication: EPILEPSY
     Dosage: 0.5 MG, 2X/DAY
     Route: 048
     Dates: start: 20121210
  76. SAW PALMETTO [Concomitant]
     Active Substance: HERBALS\SAW PALMETTO
     Dosage: 160 MG, 1X/DAY (1 PILL)
     Route: 048
  77. ALENDRONATE [Concomitant]
     Active Substance: ALENDRONATE SODIUM
     Indication: OSTEOPOROSIS
     Dosage: UNK
     Dates: start: 1999
  78. DIAZEPAM. [Concomitant]
     Active Substance: DIAZEPAM
     Indication: SEIZURE
     Dosage: 1 DF (12.5 MG-15 MG-17.5 MG-20 MG), AS NEEDED
     Route: 054
     Dates: start: 20150906
  79. DILANTIN [Suspect]
     Active Substance: PHENYTOIN
     Indication: GENERALISED TONIC-CLONIC SEIZURE
     Dosage: UNK
     Route: 048
     Dates: start: 1966, end: 2009
  80. LAMICTAL [Concomitant]
     Active Substance: LAMOTRIGINE
     Indication: SEIZURE
     Dosage: 400 MG, 2X/DAY (200 MG TABLET ORALLY TWO TABLETS TWICE DAILY)
     Route: 048
     Dates: start: 20070924
  81. PHENOBARBITAL. [Concomitant]
     Active Substance: PHENOBARBITAL
     Dosage: 32.4MG BID QPM AND 16.2MG QAM
  82. ACETAMINOPHEN. [Concomitant]
     Active Substance: ACETAMINOPHEN
     Indication: PAIN
     Dosage: UNK
     Dates: start: 1970
  83. ACETAMINOPHEN. [Concomitant]
     Active Substance: ACETAMINOPHEN
     Indication: PYREXIA
  84. BISACODYL. [Concomitant]
     Active Substance: BISACODYL
     Indication: CONSTIPATION
     Dosage: UNK
     Dates: start: 2017
  85. CLOBAZAM. [Concomitant]
     Active Substance: CLOBAZAM
     Indication: EPILEPSY
     Dosage: UNK
     Dates: start: 2013
  86. RANITIDINE. [Concomitant]
     Active Substance: RANITIDINE
     Indication: GASTROOESOPHAGEAL REFLUX DISEASE
     Dosage: UNK
     Dates: start: 2017
  87. RISPERIDONE. [Concomitant]
     Active Substance: RISPERIDONE
     Indication: DEMENTIA
     Dosage: UNK
     Dates: start: 2018
  88. CEPHALEXIN. [Concomitant]
     Active Substance: CEPHALEXIN
     Dosage: 1 DF, 2X/DAY
     Route: 048
     Dates: start: 20121217, end: 20121219
  89. DILANTIN [Suspect]
     Active Substance: PHENYTOIN
     Dosage: 100 MG, 1X/DAY (50 MG, 2 TABLETS, IN THE MORNING)
     Route: 048
     Dates: start: 20181229, end: 20190109
  90. DILANTIN-125 [Suspect]
     Active Substance: PHENYTOIN
     Dosage: 8 ML, 2X/DAY (125 MG/5ML), 8 ML (200 MG) VIA G-TUBE ON EVEN DAYS)
     Route: 048
     Dates: start: 20170702, end: 20170826
  91. DILANTIN-125 [Suspect]
     Active Substance: PHENYTOIN
     Dosage: 100 MG, 1X/DAY
     Route: 048
  92. DILANTIN-125 [Suspect]
     Active Substance: PHENYTOIN
     Dosage: 200 MG, NIGHTLY
     Route: 048
  93. DILANTIN-125 [Suspect]
     Active Substance: PHENYTOIN
     Dosage: 200 MG, SINGLE
     Route: 048
     Dates: start: 20170825
  94. LAMICTAL [Concomitant]
     Active Substance: LAMOTRIGINE
     Indication: EPILEPSY
     Dosage: UNK
     Dates: start: 2009
  95. LAMICTAL [Concomitant]
     Active Substance: LAMOTRIGINE
     Dosage: UNK (6 TABLETS IN MORNING, 5 TABLETS AFTERNOON AND 6 TABLETS AT NIGHT)
     Dates: start: 20150906
  96. LAMICTAL [Concomitant]
     Active Substance: LAMOTRIGINE
     Dosage: 600 MG, TID
  97. PHENOBARBITAL. [Concomitant]
     Active Substance: PHENOBARBITAL
     Dosage: 30 MG, 1X/DAY (1 PILL)
     Route: 048
  98. ONFI [Concomitant]
     Active Substance: CLOBAZAM
     Indication: SEIZURE
     Dosage: UNK
     Dates: start: 2012
  99. BUSPIRONE [Concomitant]
     Active Substance: BUSPIRONE HYDROCHLORIDE
     Indication: DEPRESSION
     Dosage: 1 DF, 2X/DAY
  100. FOSAMAX [Concomitant]
     Active Substance: ALENDRONATE SODIUM
     Dosage: 70 MG, WEEKLY (1 PILL)
     Route: 048
  101. VIMPAT [Concomitant]
     Active Substance: LACOSAMIDE
     Dosage: 200 MG, 2X/DAY (1 PILL)
     Route: 048
  102. FERROUS SULFATE. [Concomitant]
     Active Substance: FERROUS SULFATE
     Indication: SUPPLEMENTATION THERAPY
     Dosage: UNK
     Dates: start: 2017
  103. WARFARIN SODIUM. [Concomitant]
     Active Substance: WARFARIN SODIUM
     Dosage: 1 DF, DAILY
     Route: 048
     Dates: start: 20121210

REACTIONS (34)
  - Memory impairment [Not Recovered/Not Resolved]
  - Pulmonary congestion [Unknown]
  - Sleep apnoea syndrome [Not Recovered/Not Resolved]
  - Rib fracture [Unknown]
  - Ataxia [Not Recovered/Not Resolved]
  - Speech disorder [Not Recovered/Not Resolved]
  - Drug dependence [Unknown]
  - Bone metabolism disorder [Unknown]
  - Toxicity to various agents [Recovering/Resolving]
  - Impaired driving ability [Unknown]
  - Loss of personal independence in daily activities [Unknown]
  - Dysstasia [Unknown]
  - Neuropathy peripheral [Not Recovered/Not Resolved]
  - Amnesia [Not Recovered/Not Resolved]
  - Tremor [Not Recovered/Not Resolved]
  - Dysarthria [Not Recovered/Not Resolved]
  - Gait inability [Unknown]
  - Atelectasis [Unknown]
  - Cerebellar atrophy [Not Recovered/Not Resolved]
  - Balance disorder [Not Recovered/Not Resolved]
  - Coordination abnormal [Not Recovered/Not Resolved]
  - Gingival hypertrophy [Unknown]
  - Lethargy [Recovering/Resolving]
  - Sexual dysfunction [Unknown]
  - Pulmonary embolism [Unknown]
  - Cognitive disorder [Not Recovered/Not Resolved]
  - Vitamin D deficiency [Unknown]
  - Diplopia [Unknown]
  - Pleural effusion [Unknown]
  - Muscular weakness [Not Recovered/Not Resolved]
  - Mental status changes [Recovered/Resolved]
  - Cerebrovascular accident [Unknown]
  - Osteoporosis [Unknown]
  - Dysphagia [Unknown]

NARRATIVE: CASE EVENT DATE: 20070924
